FAERS Safety Report 5333098-7 (Version None)
Quarter: 2007Q2

REPORT INFORMATION
  Report Type: 
  Country: None (occurrence: None)
  Receive Date: 20070521
  Receipt Date: 20070518
  Transmission Date: 20071010
  Serious: Yes (Life-Threatening, Hospitalization)
  Sender: FDA-Public Use
  Company Number: 07-073

PATIENT
  Age: 14 Year
  Sex: Male
  Weight: 75 kg

DRUGS (1)
  1. IBUPROFEN [Suspect]
     Indication: INTENTIONAL OVERDOSE
     Dosage: 50 G, ONCE, ORAL
     Route: 048

REACTIONS (14)
  - AREFLEXIA [None]
  - EXTRASYSTOLES [None]
  - GASTROINTESTINAL HAEMORRHAGE [None]
  - HYPOTENSION [None]
  - INCORRECT DOSE ADMINISTERED [None]
  - LOSS OF CONSCIOUSNESS [None]
  - MOVEMENT DISORDER [None]
  - NO THERAPEUTIC RESPONSE [None]
  - PULMONARY HAEMORRHAGE [None]
  - PULSE ABSENT [None]
  - RENAL FAILURE [None]
  - RESPIRATORY RATE INCREASED [None]
  - SINUS TACHYCARDIA [None]
  - VOMITING [None]
